FAERS Safety Report 24920613 (Version 1)
Quarter: 2025Q1

REPORT INFORMATION
  Report Type: Report from Study
  Country: JP (occurrence: JP)
  Receive Date: 20250204
  Receipt Date: 20250204
  Transmission Date: 20250408
  Serious: Yes (Other)
  Sender: ROCHE
  Company Number: JP-ROCHE-10000191967

PATIENT

DRUGS (1)
  1. TOCILIZUMAB [Suspect]
     Active Substance: TOCILIZUMAB
     Indication: Takayasu^s arteritis
     Route: 058

REACTIONS (8)
  - Aortic dissection [Unknown]
  - Arthralgia [Unknown]
  - Dizziness [Unknown]
  - Bile duct stone [Unknown]
  - Nausea [Unknown]
  - Gastroenteritis [Unknown]
  - Leukopenia [Unknown]
  - Pruritus [Unknown]
